FAERS Safety Report 20102415 (Version 2)
Quarter: 2022Q1

REPORT INFORMATION
  Report Type: Report from Study
  Country: US (occurrence: US)
  Receive Date: 20211123
  Receipt Date: 20220117
  Transmission Date: 20220423
  Serious: No
  Sender: FDA-Public Use
  Company Number: US-KYOWAKIRIN-2021BKK019474

PATIENT

DRUGS (2)
  1. CRYSVITA [Suspect]
     Active Substance: BUROSUMAB-TWZA
     Indication: Hereditary hypophosphataemic rickets
     Dosage: 40 MG, ONCE EVERY 14 DAYS
     Route: 058
     Dates: start: 20200605
  2. CRYSVITA [Suspect]
     Active Substance: BUROSUMAB-TWZA
     Dosage: 40 MG, ONCE EVERY 14 DAYS
     Route: 058

REACTIONS (4)
  - Lactose intolerance [Unknown]
  - Sinus disorder [Unknown]
  - Visual impairment [Unknown]
  - Headache [Unknown]
